FAERS Safety Report 8210975-0 (Version None)
Quarter: 2012Q1

REPORT INFORMATION
  Report Type: 
  Country: None (occurrence: None)
  Receive Date: 20120315
  Receipt Date: 20120305
  Transmission Date: 20120608
  Serious: Yes (Hospitalization)
  Sender: FDA-Public Use
  Company Number: CA-JNJFOC-20111107797

PATIENT
  Sex: Male
  Weight: 84 kg

DRUGS (3)
  1. REMICADE [Suspect]
     Indication: CROHN'S DISEASE
     Dates: start: 20100413
  2. FLAGYL [Concomitant]
     Dates: start: 20111101
  3. FLAGYL [Concomitant]
     Dates: start: 20111101

REACTIONS (1)
  - FISTULA [None]
